FAERS Safety Report 9381223 (Version 2)
Quarter: 2013Q3

REPORT INFORMATION
  Report Type: Spontaneous
  Country: US (occurrence: US)
  Receive Date: 20130703
  Receipt Date: 20130911
  Transmission Date: 20140515
  Serious: Yes (Other)
  Sender: FDA-Public Use
  Company Number: US-BAYER-2013-079208

PATIENT
  Sex: Male

DRUGS (2)
  1. CIPRO [Suspect]
     Indication: BRAIN ABSCESS
     Dosage: 500 MG, QD
     Dates: start: 2011
  2. LACOSAMIDE [Concomitant]
     Dosage: 150 MG, BID
     Dates: start: 201106

REACTIONS (1)
  - Renal injury [None]
